FAERS Safety Report 23050684 (Version 1)
Quarter: 2023Q4

REPORT INFORMATION
  Report Type: Report from Study
  Country: US (occurrence: US)
  Receive Date: 20231010
  Receipt Date: 20231010
  Transmission Date: 20240109
  Serious: Yes (Hospitalization, Other)
  Sender: FDA-Public Use
  Company Number: US-ELI_LILLY_AND_COMPANY-US202310004699

PATIENT
  Age: 56 Year
  Sex: Female
  Weight: 71.6 kg

DRUGS (9)
  1. ABEMACICLIB [Suspect]
     Active Substance: ABEMACICLIB
     Indication: Ovarian neoplasm
     Dosage: 150 MG, BID
     Route: 048
     Dates: start: 20230818, end: 20230926
  2. GIREDESTRANT [Suspect]
     Active Substance: GIREDESTRANT
     Indication: Ovarian neoplasm
     Dosage: 30 MG, DAILY
     Route: 048
     Dates: start: 20230818, end: 20230926
  3. ATENOLOL [Concomitant]
     Active Substance: ATENOLOL
     Indication: Anxiety
     Dosage: 50 MG, DAILY
     Route: 048
     Dates: start: 20011101
  4. CHOLECALCIFEROL [Concomitant]
     Active Substance: CHOLECALCIFEROL
     Indication: Product used for unknown indication
     Dosage: 5000 INTERNATIONAL UNIT, DAILY
     Route: 048
     Dates: start: 20220801
  5. IBUPROFEN [Concomitant]
     Active Substance: IBUPROFEN
     Indication: Abdominal pain
     Dosage: 400 MG, DAILY PRN
     Route: 048
     Dates: start: 20221101
  6. DOCUSATE SODIUM [Concomitant]
     Active Substance: DOCUSATE SODIUM
     Indication: Constipation
     Dosage: 100 MG, DAILY PRN
     Route: 048
     Dates: start: 20230105
  7. ATORVASTATIN [Concomitant]
     Active Substance: ATORVASTATIN
     Indication: Hyperlipidaemia
     Dosage: 20 MG, DAILY
     Route: 048
     Dates: start: 20230601
  8. ONDANSETRON [Concomitant]
     Active Substance: ONDANSETRON
     Indication: Nausea
     Dosage: 8 MG, DAILY PRN
     Route: 048
     Dates: start: 20230824
  9. PROCHLORPERAZINE [Concomitant]
     Active Substance: PROCHLORPERAZINE
     Indication: Nausea
     Dosage: 10 MG, DAILY PRN
     Route: 048
     Dates: start: 20230824

REACTIONS (3)
  - Anaemia [Recovering/Resolving]
  - Hypercalcaemia [Recovering/Resolving]
  - Fatigue [Recovering/Resolving]

NARRATIVE: CASE EVENT DATE: 20230927
